FAERS Safety Report 8230955-9 (Version None)
Quarter: 2012Q1

REPORT INFORMATION
  Report Type: 
  Country: None (occurrence: None)
  Receive Date: 20120320
  Receipt Date: 20120305
  Transmission Date: 20120608
  Serious: Yes (Other)
  Sender: FDA-Public Use
  Company Number: JPI-P-020232

PATIENT
  Age: 48 Year
  Sex: Female

DRUGS (1)
  1. XYREM [Suspect]
     Indication: PRODUCT USED FOR UNKNOWN INDICATION
     Dosage: , ORAL
     Route: 048

REACTIONS (2)
  - ROAD TRAFFIC ACCIDENT [None]
  - LOWER LIMB FRACTURE [None]
